FAERS Safety Report 7457267-5 (Version None)
Quarter: 2011Q2

REPORT INFORMATION
  Report Type: 
  Country: None (occurrence: None)
  Receive Date: 20110504
  Receipt Date: 20100528
  Transmission Date: 20111010
  Serious: Yes (Other)
  Sender: FDA-Public Use
  Company Number: US-SANOFI-AVENTIS-2010SA032249

PATIENT
  Age: 53 Year
  Sex: Female

DRUGS (3)
  1. LANTUS [Suspect]
     Route: 058
  2. APIDRA [Suspect]
     Dosage: SLIDING SCALE
     Route: 058
  3. OPTICLICK [Suspect]
     Dates: start: 20090101

REACTIONS (3)
  - STRESS [None]
  - VISUAL ACUITY REDUCED [None]
  - HYPERGLYCAEMIA [None]
